FAERS Safety Report 5757716-4 (Version None)
Quarter: 2008Q2

REPORT INFORMATION
  Report Type: 
  Country: None (occurrence: None)
  Receive Date: 20080529
  Receipt Date: 20080515
  Transmission Date: 20081010
  Serious: Yes (Hospitalization)
  Sender: FDA-Public Use
  Company Number: 028237

PATIENT
  Age: 31 Year
  Sex: Male

DRUGS (1)
  1. CLARAVIS [Suspect]
     Dosage: 80 MG/DAY, ORAL
     Route: 048

REACTIONS (6)
  - ARTHRALGIA [None]
  - COUGH [None]
  - EPISTAXIS [None]
  - GUILLAIN-BARRE SYNDROME [None]
  - INFLUENZA LIKE ILLNESS [None]
  - LIP DRY [None]
